FAERS Safety Report 7703875-3 (Version None)
Quarter: 2011Q3

REPORT INFORMATION
  Report Type: 
  Country: None (occurrence: None)
  Receive Date: 20110823
  Receipt Date: 20110815
  Transmission Date: 20111222
  Serious: Yes (Hospitalization, Other)
  Sender: FDA-Public Use
  Company Number: US-BAYER-201042135NA

PATIENT
  Age: 39 Year
  Sex: Female
  Weight: 127 kg

DRUGS (10)
  1. YAZ [Suspect]
  2. LORTAB [Concomitant]
  3. YAZ [Suspect]
     Indication: PREMENSTRUAL SYNDROME
  4. LORTAB [Concomitant]
     Dosage: UNK
  5. YAZ [Suspect]
     Indication: ACNE
     Dosage: UNK
     Route: 048
     Dates: start: 20080701, end: 20081101
  6. NAPROXEN [Concomitant]
  7. DILAUDID [Concomitant]
     Dosage: UNK
     Dates: start: 20081101
  8. COLACE [Concomitant]
  9. PRILOSEC [Concomitant]
  10. PROVENTIL [Concomitant]

REACTIONS (3)
  - PULMONARY EMBOLISM [None]
  - DEEP VEIN THROMBOSIS [None]
  - PAIN [None]
